FAERS Safety Report 7977880-6 (Version None)
Quarter: 2011Q4

REPORT INFORMATION
  Report Type: 
  Country: None (occurrence: None)
  Receive Date: 20111214
  Receipt Date: 20111202
  Transmission Date: 20120403
  Serious: Yes (Hospitalization)
  Sender: FDA-Public Use
  Company Number: FR-BRISTOL-MYERS SQUIBB COMPANY-16282204

PATIENT
  Age: 52 Year
  Sex: Female

DRUGS (7)
  1. ACETAMINOPHEN [Concomitant]
  2. PHENYTOIN SODIUM [Concomitant]
     Indication: EPILEPSY
     Route: 048
  3. GLUCOPHAGE [Suspect]
     Dosage: STRENGTH:850MG
     Route: 048
  4. ASPIRIN [Concomitant]
  5. GLIMEPIRIDE [Suspect]
     Indication: DIABETES MELLITUS
     Route: 048
  6. DEPAKENE [Suspect]
     Indication: EPILEPSY
     Dosage: STRENGTH:500MG GASTRORESISTANT FILM COATED TABS
     Route: 048
     Dates: end: 20111008
  7. PHENOBARBITAL TAB [Suspect]
     Indication: EPILEPSY
     Route: 048

REACTIONS (2)
  - SOMNOLENCE [None]
  - HYPERAMMONAEMIA [None]
